FAERS Safety Report 16396265 (Version 1)
Quarter: 2019Q2

REPORT INFORMATION
  Report Type: Spontaneous
  Country: GB (occurrence: GB)
  Receive Date: 20190605
  Receipt Date: 20190605
  Transmission Date: 20190711
  Serious: Yes (Disabling)
  Sender: FDA-Public Use
  Company Number: GB-ELI_LILLY_AND_COMPANY-GB201905014808

PATIENT
  Age: 51 Year
  Sex: Female
  Weight: 94 kg

DRUGS (8)
  1. GLUCOPHAGE [Concomitant]
     Active Substance: METFORMIN HYDROCHLORIDE
     Indication: PRODUCT USED FOR UNKNOWN INDICATION
  2. METFORMIN [Concomitant]
     Active Substance: METFORMIN HYDROCHLORIDE
     Indication: PRODUCT USED FOR UNKNOWN INDICATION
  3. AMITRIPTYLINE [Concomitant]
     Active Substance: AMITRIPTYLINE
     Indication: PRODUCT USED FOR UNKNOWN INDICATION
  4. SIMVASTATIN. [Concomitant]
     Active Substance: SIMVASTATIN
     Indication: PRODUCT USED FOR UNKNOWN INDICATION
  5. GLICLAZIDE [Concomitant]
     Active Substance: GLICLAZIDE
     Indication: PRODUCT USED FOR UNKNOWN INDICATION
  6. LEVOTHYROXINE. [Concomitant]
     Active Substance: LEVOTHYROXINE
     Indication: PRODUCT USED FOR UNKNOWN INDICATION
  7. TRULICITY [Suspect]
     Active Substance: DULAGLUTIDE
     Indication: BLOOD GLUCOSE ABNORMAL
     Route: 051
     Dates: start: 201810, end: 201903
  8. RAMIPRIL. [Concomitant]
     Active Substance: RAMIPRIL
     Indication: PRODUCT USED FOR UNKNOWN INDICATION

REACTIONS (8)
  - Diarrhoea [Recovered/Resolved]
  - Incorrect route of product administration [Unknown]
  - Palpitations [Recovered/Resolved]
  - Hypoaesthesia [Recovered/Resolved]
  - Hyperhidrosis [Recovered/Resolved]
  - Vomiting [Recovered/Resolved]
  - Dizziness [Recovered/Resolved]
  - Gastrointestinal pain [Recovered/Resolved]

NARRATIVE: CASE EVENT DATE: 201810
